FAERS Safety Report 12396046 (Version 2)
Quarter: 2016Q2

REPORT INFORMATION
  Report Type: Spontaneous
  Country: CN (occurrence: CN)
  Receive Date: 20160524
  Receipt Date: 20160627
  Transmission Date: 20160815
  Serious: Yes (Death)
  Sender: FDA-Public Use
  Company Number: CN-JNJFOC-20160517330

PATIENT
  Age: 22 Year
  Sex: Male

DRUGS (1)
  1. TYLENOL EXTENDED RELIEF CAPLETS [Suspect]
     Active Substance: ACETAMINOPHEN
     Indication: PYREXIA
     Dosage: 7.8 G IN TOTAL
     Route: 048
     Dates: start: 201405

REACTIONS (6)
  - Acute hepatic failure [Fatal]
  - Hepatic necrosis [Fatal]
  - Drug ineffective [Unknown]
  - Multiple organ dysfunction syndrome [Fatal]
  - Overdose [Fatal]
  - Haemorrhage [Fatal]

NARRATIVE: CASE EVENT DATE: 2014
